FAERS Safety Report 8062404-8 (Version None)
Quarter: 2012Q1

REPORT INFORMATION
  Report Type: 
  Country: None (occurrence: None)
  Receive Date: 20120123
  Receipt Date: 20120118
  Transmission Date: 20120608
  Serious: Yes (Other)
  Sender: FDA-Public Use
  Company Number: US-JNJFOC-20120107682

PATIENT
  Sex: Female

DRUGS (2)
  1. NUCYNTA [Suspect]
     Indication: PRODUCT USED FOR UNKNOWN INDICATION
     Route: 048
     Dates: start: 20120101, end: 20120101
  2. UNSPECIFIED ANTIDEPRESSANTS [Concomitant]
     Indication: DEPRESSION
     Route: 065

REACTIONS (2)
  - DEPRESSION [None]
  - BEDRIDDEN [None]
